FAERS Safety Report 4525904-0 (Version None)
Quarter: 2004Q4

REPORT INFORMATION
  Report Type: 
  Country: None (occurrence: None)
  Receive Date: 20041213
  Receipt Date: 20041129
  Transmission Date: 20050328
  Serious: Yes (Disabling)
  Sender: FDA-Public Use
  Company Number: PHBS2004US16265

PATIENT
  Age: 17 Year
  Sex: Male

DRUGS (5)
  1. PREDNISONE [Suspect]
     Indication: RENAL TRANSPLANT
     Dosage: 10 MG/D
  2. AZATHIOPRINE [Concomitant]
     Dosage: 150 MG/D
  3. FUROSEMIDE [Concomitant]
     Dosage: 40 MG/D
  4. NIFEDIPINE [Concomitant]
     Dosage: 20 MG/D
  5. CYCLOSPORINE [Suspect]
     Indication: RENAL TRANSPLANT
     Dosage: 100 MG/D

REACTIONS (8)
  - CSF PRESSURE INCREASED [None]
  - HEADACHE [None]
  - INTRACRANIAL PRESSURE INCREASED [None]
  - NUCLEAR MAGNETIC RESONANCE IMAGING ABNORMAL [None]
  - OPTIC ATROPHY [None]
  - PAPILLOEDEMA [None]
  - THERAPEUTIC PROCEDURE [None]
  - VISUAL ACUITY REDUCED [None]
